FAERS Safety Report 4993253-2 (Version None)
Quarter: 2006Q1

REPORT INFORMATION
  Report Type: 
  Country: None (occurrence: None)
  Receive Date: 20060314
  Receipt Date: 20050620
  Transmission Date: 20060701
  Serious: Yes (Other)
  Sender: FDA-Public Use
  Company Number: 200511299BCC

PATIENT
  Age: 47 Year
  Sex: Female
  Weight: 112.9457 kg

DRUGS (2)
  1. ALEVE [Suspect]
     Indication: TOOTHACHE
     Dosage: 880 MG, TOTAL DAILY, ORAL
     Route: 048
     Dates: start: 20050327
  2. ATENOLOL [Concomitant]

REACTIONS (1)
  - BLOOD URINE PRESENT [None]
